FAERS Safety Report 9748328 (Version 2)
Quarter: 2013Q4

REPORT INFORMATION
  Report Type: Report from Study
  Country: US (occurrence: US)
  Receive Date: 20131212
  Receipt Date: 20131212
  Transmission Date: 20140711
  Serious: Yes (Other)
  Sender: FDA-Public Use
  Company Number: PHEH2013US023399

PATIENT
  Sex: Female

DRUGS (1)
  1. ILARIS [Suspect]
     Dosage: 300 MG, UNK

REACTIONS (6)
  - Bronchospasm [Unknown]
  - Candida infection [Unknown]
  - Sinusitis [Unknown]
  - Headache [Unknown]
  - Cough [Unknown]
  - Pyrexia [Unknown]
